FAERS Safety Report 6693693-X (Version None)
Quarter: 2010Q2

REPORT INFORMATION
  Report Type: 
  Country: None (occurrence: None)
  Receive Date: 20100421
  Receipt Date: 20100409
  Transmission Date: 20101027
  Serious: Yes (Hospitalization, Other)
  Sender: FDA-Public Use
  Company Number: 238982K09USA

PATIENT
  Age: 51 Year
  Sex: Female

DRUGS (4)
  1. REBIF [Suspect]
     Indication: MULTIPLE SCLEROSIS
     Dosage: 44 MCG, 3 IN 1 WK, SUBCUTANEOUS
     Route: 058
     Dates: start: 20081009
  2. PRAVASTATIN [Concomitant]
  3. GLUCOPHAGE [Concomitant]
  4. ALTACE [Concomitant]

REACTIONS (5)
  - CARDIAC FAILURE CONGESTIVE [None]
  - PNEUMONIA [None]
  - POST PROCEDURAL COMPLICATION [None]
  - RENAL FAILURE [None]
  - VENTRICULAR EXTRASYSTOLES [None]
